FAERS Safety Report 9319565 (Version 4)
Quarter: 2014Q4

REPORT INFORMATION
  Report Type: Spontaneous
  Country: US (occurrence: US)
  Receive Date: 20130530
  Receipt Date: 20141223
  Transmission Date: 20150529
  Serious: Yes (Death, Hospitalization, Other)
  Sender: FDA-Public Use
  Company Number: US-GLAXOSMITHKLINE-A1007192A

PATIENT
  Age: 53 Year
  Sex: Female

DRUGS (6)
  1. REVATIO [Concomitant]
     Active Substance: SILDENAFIL CITRATE
  2. FLOLAN [Suspect]
     Active Substance: EPOPROSTENOL SODIUM
     Dosage: 64 NG/KG/MIN CONTINUOUSLY; CONCENTRATION: 90,000 NG/ML; PUMP RATE: 78 ML/DAY; VIAL STRENGTH: 1.5 MG
     Route: 042
     Dates: start: 20061109
  3. FLOLAN [Suspect]
     Active Substance: EPOPROSTENOL SODIUM
     Dosage: UNK
     Dates: start: 20060817
  4. LETAIRIS [Concomitant]
     Active Substance: AMBRISENTAN
  5. FLOLAN [Suspect]
     Active Substance: EPOPROSTENOL SODIUM
     Indication: PULMONARY ARTERIAL HYPERTENSION
     Dosage: 50 NG/KG/MIN CONTINUOUSLY, CONCENTRATION 75,000 NG/ML, VIAL STRENGTH 1. 5MG44 NG/KG/MIN CONTINU[...]
     Route: 042
     Dates: start: 20060817
  6. FLOLAN [Suspect]
     Active Substance: EPOPROSTENOL SODIUM
     Dosage: UNK
     Dates: start: 20060817

REACTIONS (17)
  - Fatigue [Unknown]
  - Application site erythema [Not Recovered/Not Resolved]
  - Catheter site hypersensitivity [Unknown]
  - Device related infection [Not Recovered/Not Resolved]
  - Fluid retention [Unknown]
  - Flushing [Unknown]
  - Death [Fatal]
  - Headache [Unknown]
  - Feeling hot [Unknown]
  - Malaise [Unknown]
  - Poor quality sleep [Unknown]
  - Device infusion issue [Unknown]
  - Cardiac output increased [Unknown]
  - Therapy cessation [Unknown]
  - Weight decreased [Not Recovered/Not Resolved]
  - Ill-defined disorder [Not Recovered/Not Resolved]
  - Catheter site bruise [Unknown]

NARRATIVE: CASE EVENT DATE: 20121226
